FAERS Safety Report 9658089 (Version 1)
Quarter: 2013Q4

REPORT INFORMATION
  Report Type: Spontaneous
  Country: DE (occurrence: DE)
  Receive Date: 20131030
  Receipt Date: 20131030
  Transmission Date: 20140711
  Serious: Yes (Congenital Anomaly)
  Sender: FDA-Public Use
  Company Number: GXKR2013DE003422

PATIENT
  Age: 1 Day
  Sex: Male
  Weight: 4.04 kg

DRUGS (3)
  1. PAROXETINE [Suspect]
     Indication: ANXIETY DISORDER
     Dosage: MATERNAL DOSE: 20 [MG/D]/ 20 MG UNTIL 22. WEEK OF PREGNANCY, THEN REDUCTION TO 10 MG/D
     Route: 064
     Dates: start: 20090105, end: 20090415
  2. OLANZAPINE [Suspect]
     Indication: PSYCHOTIC DISORDER
     Dosage: 7.5 [MG/D ]
     Route: 064
     Dates: start: 20081031, end: 20081218
  3. THYRONAJOD [Concomitant]
     Indication: HYPOTHYROIDISM
     Dosage: 150 [?G/D ] / 75 [?G/D ]
     Route: 064

REACTIONS (1)
  - Talipes [Recovering/Resolving]
